FAERS Safety Report 6726206-4 (Version None)
Quarter: 2010Q2

REPORT INFORMATION
  Report Type: 
  Country: None (occurrence: None)
  Receive Date: 20100514
  Receipt Date: 20100510
  Transmission Date: 20101027
  Serious: Yes (Hospitalization, Other)
  Sender: FDA-Public Use
  Company Number: US-TEVA-234487USA

PATIENT
  Age: 49 Year
  Sex: Female

DRUGS (2)
  1. AZITHROMYCIN 600MG TABLET [Suspect]
     Indication: BRONCHITIS
  2. RED YEAST RICE [Interacting]

REACTIONS (2)
  - DRUG INTERACTION [None]
  - RHABDOMYOLYSIS [None]
